FAERS Safety Report 12321259 (Version 15)
Quarter: 2022Q4

REPORT INFORMATION
  Report Type: Other
  Country: GB (occurrence: GB)
  Receive Date: 20160502
  Receipt Date: 20221202
  Transmission Date: 20230113
  Serious: Yes (Hospitalization, Other)
  Sender: FDA-Public Use
  Company Number: GB-ROCHE-1748037

PATIENT
  Age: 80 Year
  Sex: Female

DRUGS (17)
  1. TRASTUZUMAB [Suspect]
     Active Substance: TRASTUZUMAB
     Indication: Breast cancer metastatic
     Route: 058
     Dates: start: 20151223, end: 20160316
  2. LETROZOLE [Suspect]
     Active Substance: LETROZOLE
     Indication: Breast cancer metastatic
     Route: 048
     Dates: start: 20151103
  3. SENNA LEAF [Concomitant]
     Active Substance: SENNA LEAF
  4. ACETAMINOPHEN [Concomitant]
     Active Substance: ACETAMINOPHEN
     Indication: Analgesic therapy
     Dosage: 500 MG
     Route: 065
     Dates: start: 20160130, end: 20160308
  5. FLUCLOXACILLIN [Concomitant]
     Active Substance: FLUCLOXACILLIN
     Indication: Cellulitis
     Dosage: 500 MG
     Route: 048
     Dates: start: 20160106
  6. FLUCLOXACILLIN [Concomitant]
     Active Substance: FLUCLOXACILLIN
     Dosage: 500 MG
     Route: 048
     Dates: start: 20160205, end: 20160211
  7. RAMIPRIL [Concomitant]
     Active Substance: RAMIPRIL
     Dosage: 5 MILLIGRAM, UNK
     Route: 048
  8. CO-DYDRAMOL [Concomitant]
     Active Substance: ACETAMINOPHEN\DIHYDROCODEINE
     Indication: Prophylaxis
     Dosage: 10/500 MG
     Route: 048
     Dates: start: 20160130, end: 20160204
  9. SODIUM CHLORIDE [Concomitant]
     Active Substance: SODIUM CHLORIDE
     Indication: Prophylaxis
     Dosage: PRN
     Route: 050
     Dates: start: 20160130, end: 20160130
  10. WARFARIN [Concomitant]
     Active Substance: WARFARIN
     Dosage: 1 MG
     Route: 048
     Dates: end: 20160217
  11. TINZAPARIN [Concomitant]
     Active Substance: TINZAPARIN
     Dosage: DOSE: 3500 UNITS
     Route: 058
     Dates: start: 20160302, end: 20160314
  12. MORPHINE SULFATE [Concomitant]
     Active Substance: MORPHINE SULFATE
  13. FUROSEMIDE [Concomitant]
     Active Substance: FUROSEMIDE
     Indication: Prophylaxis
     Dosage: 40 MILLIGRAM DAILY;
     Route: 048
     Dates: start: 20160208, end: 20160212
  14. FUROSEMIDE [Concomitant]
     Active Substance: FUROSEMIDE
     Dosage: 80 MILLIGRAM DAILY;
     Route: 048
     Dates: start: 20160208, end: 20160212
  15. BENDROFLUMETHIAZID [Concomitant]
     Route: 048
  16. ZOLEDRONIC ACID [Concomitant]
     Active Substance: ZOLEDRONIC ACID
     Route: 042
     Dates: start: 20160203
  17. ATENOLOL [Concomitant]
     Active Substance: ATENOLOL
     Route: 054

REACTIONS (19)
  - Sepsis [Not Recovered/Not Resolved]
  - Rectal haemorrhage [Recovered/Resolved]
  - Melaena [Recovered/Resolved]
  - Cellulitis [Not Recovered/Not Resolved]
  - Vomiting [Recovered/Resolved]
  - Oropharyngeal pain [Recovered/Resolved]
  - Pain [Not Recovered/Not Resolved]
  - International normalised ratio increased [Recovered/Resolved]
  - Blood creatinine increased [Recovered/Resolved]
  - Hypotension [Recovered/Resolved]
  - Hypoglycaemia [Recovered/Resolved]
  - Hyperglycaemia [Recovered/Resolved]
  - Diverticulum [Not Recovered/Not Resolved]
  - Cough [Recovered/Resolved]
  - Constipation [Not Recovered/Not Resolved]
  - Confusional state [Recovered/Resolved]
  - Skin wound [Not Recovered/Not Resolved]
  - Agitation [Unknown]
  - Acidosis [Recovered/Resolved]

NARRATIVE: CASE EVENT DATE: 20160119
